FAERS Safety Report 22257691 (Version 1)
Quarter: 2023Q2

REPORT INFORMATION
  Report Type: Report from Study
  Country: BR (occurrence: None)
  Receive Date: 20230427
  Receipt Date: 20230427
  Transmission Date: 20230721
  Serious: Yes (Other)
  Sender: FDA-Public Use
  Company Number: BR-Merck Healthcare KGaA-9375010

PATIENT
  Age: 14 Year
  Sex: Female

DRUGS (1)
  1. INTERFERON BETA-1A [Suspect]
     Active Substance: INTERFERON BETA-1A
     Indication: Multiple sclerosis
     Route: 058
     Dates: start: 20210202

REACTIONS (3)
  - Hypothermia [Not Recovered/Not Resolved]
  - Feeling cold [Unknown]
  - Fall [Unknown]

NARRATIVE: CASE EVENT DATE: 20210101
